FAERS Safety Report 8991913 (Version 2)
Quarter: 2013Q2

REPORT INFORMATION
  Report Type: Spontaneous
  Country: IT (occurrence: IT)
  Receive Date: 20121231
  Receipt Date: 20130401
  Transmission Date: 20140414
  Serious: Yes (Other)
  Sender: FDA-Public Use
  Company Number: IT-AMGEN-ITASP2012083752

PATIENT
  Age: 47 Year
  Sex: Female

DRUGS (1)
  1. ENBREL [Suspect]
     Indication: RHEUMATOID ARTHRITIS
     Dosage: 50 MG, CYCLIC
     Route: 058
     Dates: start: 20121119, end: 20121214

REACTIONS (2)
  - Rash erythematous [Recovered/Resolved]
  - Blister [Recovered/Resolved]
